FAERS Safety Report 5420182-2 (Version None)
Quarter: 2007Q3

REPORT INFORMATION
  Report Type: 
  Country: None (occurrence: None)
  Receive Date: 20070820
  Receipt Date: 20070726
  Transmission Date: 20080115
  Serious: No
  Sender: FDA-Public Use
  Company Number: US-BOEHRINGER INGELHEIM PHARMACEUTICALS, INC.-2007-BP-18156BP

PATIENT

DRUGS (3)
  1. ATROVENT HFA [Suspect]
  2. DUONEB [Suspect]
  3. ALBUTEROL [Concomitant]

REACTIONS (1)
  - DYSPNOEA [None]
